FAERS Safety Report 6637411-X (Version None)
Quarter: 2010Q1

REPORT INFORMATION
  Report Type: 
  Country: None (occurrence: None)
  Receive Date: 20100311
  Receipt Date: 20100225
  Transmission Date: 20100710
  Serious: Yes (Hospitalization, Other)
  Sender: FDA-Public Use
  Company Number: GB-2010-0438

PATIENT
  Age: 52 Year
  Sex: Male

DRUGS (5)
  1. NAVELBINE [Suspect]
     Indication: NON-SMALL CELL LUNG CANCER
  2. VINORELBINE [Suspect]
     Indication: NON-SMALL CELL LUNG CANCER
  3. DOMPERIDONE [Concomitant]
  4. DEXAMETHASONE [Concomitant]
  5. CYCLIZINE [Concomitant]

REACTIONS (4)
  - DECREASED APPETITE [None]
  - DEHYDRATION [None]
  - NEUTROPENIA [None]
  - VOMITING [None]
